FAERS Safety Report 6470206-9 (Version None)
Quarter: 2009Q4

REPORT INFORMATION
  Report Type: 
  Country: None (occurrence: None)
  Receive Date: 20091203
  Receipt Date: 20071218
  Transmission Date: 20100525
  Serious: Yes (Other)
  Sender: FDA-Public Use
  Company Number: TR-ELI_LILLY_AND_COMPANY-TR200801000039

PATIENT
  Age: 80 Year
  Sex: Female
  Weight: 75 kg

DRUGS (3)
  1. HUMALOG [Suspect]
     Indication: TYPE 2 DIABETES MELLITUS
     Dosage: 15 UNITS IN THE MORNING, NOON AND EVENING
     Route: 058
     Dates: start: 19920101
  2. HUMULIN N [Suspect]
     Indication: TYPE 2 DIABETES MELLITUS
     Dosage: 15 UNITS AT NIGHT
     Route: 058
     Dates: start: 19920101
  3. NEURONTIN [Concomitant]
     Dosage: 2/D
     Route: 048
     Dates: start: 19970101

REACTIONS (1)
  - CATARACT OPERATION [None]
